FAERS Safety Report 6976941-8 (Version None)
Quarter: 2010Q3

REPORT INFORMATION
  Report Type: 
  Country: None (occurrence: None)
  Receive Date: 20100910
  Receipt Date: 20090507
  Transmission Date: 20110219
  Serious: No
  Sender: FDA-Public Use
  Company Number: US-WYE-H09269009

PATIENT
  Sex: Male
  Weight: 72.64 kg

DRUGS (3)
  1. PRISTIQ [Suspect]
     Route: 048
     Dates: start: 20090301
  2. LOTREL [Concomitant]
  3. ARICEPT [Concomitant]

REACTIONS (2)
  - FATIGUE [None]
  - HYPERSOMNIA [None]
